FAERS Safety Report 6700800-9 (Version None)
Quarter: 2010Q2

REPORT INFORMATION
  Report Type: 
  Country: None (occurrence: None)
  Receive Date: 20100428
  Receipt Date: 20100426
  Transmission Date: 20101027
  Serious: No
  Sender: FDA-Public Use
  Company Number: CA-ELI_LILLY_AND_COMPANY-CA201003000282

PATIENT
  Age: 8 Year
  Sex: Male
  Weight: 27 kg

DRUGS (1)
  1. HUMALOG [Suspect]
     Indication: TYPE 1 DIABETES MELLITUS
     Dosage: UNK, AS NEEDED

REACTIONS (2)
  - BLOOD GLUCOSE INCREASED [None]
  - INCORRECT DOSE ADMINISTERED [None]
